FAERS Safety Report 19083718 (Version 1)
Quarter: 2021Q2

REPORT INFORMATION
  Report Type: Spontaneous
  Country: JP (occurrence: JP)
  Receive Date: 20210401
  Receipt Date: 20210401
  Transmission Date: 20210717
  Serious: Yes (Other)
  Sender: FDA-Public Use
  Company Number: JP-ACCORD-220671

PATIENT
  Age: 43 Year
  Sex: Female

DRUGS (7)
  1. DIFLUPREDNATE [Concomitant]
     Active Substance: DIFLUPREDNATE
     Indication: RASH
     Route: 061
  2. VINCRISTINE [Suspect]
     Active Substance: VINCRISTINE
     Indication: INTESTINAL T-CELL LYMPHOMA RECURRENT
     Dosage: MPV
  3. TACROLIMUS. [Concomitant]
     Active Substance: TACROLIMUS
     Indication: PROPHYLAXIS AGAINST GRAFT VERSUS HOST DISEASE
     Dosage: FROM DAY 1
  4. METHOTREXATE. [Suspect]
     Active Substance: METHOTREXATE
     Indication: INTESTINAL T-CELL LYMPHOMA STAGE IV
     Dosage: MPV
  5. PROCARBAZINE [Suspect]
     Active Substance: PROCARBAZINE
     Indication: INTESTINAL T-CELL LYMPHOMA RECURRENT
     Dosage: MPV
  6. METHOTREXATE. [Suspect]
     Active Substance: METHOTREXATE
     Indication: INTESTINAL T-CELL LYMPHOMA RECURRENT
     Dosage: MPV
  7. PREDNISOLONE. [Concomitant]
     Active Substance: PREDNISOLONE
     Indication: CHRONIC GRAFT VERSUS HOST DISEASE
     Route: 048

REACTIONS (2)
  - Pyelonephritis [Unknown]
  - Febrile neutropenia [Unknown]
